FAERS Safety Report 15949415 (Version 2)
Quarter: 2019Q1

REPORT INFORMATION
  Report Type: Spontaneous
  Country: AR (occurrence: AR)
  Receive Date: 20190212
  Receipt Date: 20190212
  Transmission Date: 20190417
  Serious: Yes (Hospitalization, Other)
  Sender: FDA-Public Use
  Company Number: PHHY2019AR031928

PATIENT
  Age: 49 Year
  Sex: Female

DRUGS (3)
  1. CARBAMAZEPINE. [Suspect]
     Active Substance: CARBAMAZEPINE
     Indication: EPILEPSY
     Dosage: UNK
     Route: 065
  2. METFORMIN [Suspect]
     Active Substance: METFORMIN HYDROCHLORIDE
     Indication: TYPE 2 DIABETES MELLITUS
     Dosage: UNK
     Route: 065
  3. LOSARTAN. [Concomitant]
     Active Substance: LOSARTAN
     Indication: HYPERTENSION
     Route: 065

REACTIONS (12)
  - Conjunctivitis [Unknown]
  - Hepatic function abnormal [Unknown]
  - Renal impairment [Unknown]
  - Rash erythematous [Unknown]
  - Rash [Unknown]
  - Anaemia [Unknown]
  - Rash pruritic [Unknown]
  - Staphylococcal bacteraemia [Unknown]
  - Eosinophilia [Unknown]
  - Lymphadenopathy [Unknown]
  - Pyrexia [Unknown]
  - Drug reaction with eosinophilia and systemic symptoms [Unknown]
